FAERS Safety Report 10526286 (Version 2)
Quarter: 2014Q4

REPORT INFORMATION
  Report Type: Report from Study
  Country: CA (occurrence: CA)
  Receive Date: 20141018
  Receipt Date: 20141018
  Transmission Date: 20150528
  Serious: Yes (Hospitalization, Other)
  Sender: FDA-Public Use
  Company Number: CA-ABBVIE-14K-028-1292544-00

PATIENT
  Sex: Female
  Weight: 65.83 kg

DRUGS (4)
  1. PREDNISONE. [Concomitant]
     Active Substance: PREDNISONE
     Indication: CROHN^S DISEASE
     Route: 048
     Dates: start: 201402
  2. MARIJUANA [Concomitant]
     Active Substance: CANNABIS SATIVA SUBSP. INDICA TOP
     Indication: MIGRAINE
  3. MARIJUANA [Concomitant]
     Active Substance: CANNABIS SATIVA SUBSP. INDICA TOP
     Indication: RHEUMATOID ARTHRITIS
     Route: 055
  4. HUMIRA [Suspect]
     Active Substance: ADALIMUMAB
     Indication: CROHN^S DISEASE
     Route: 058
     Dates: start: 20130703, end: 201312

REACTIONS (8)
  - Abscess intestinal [Recovered/Resolved]
  - Abscess intestinal [Recovered/Resolved]
  - Infection [Recovered/Resolved]
  - Weight decreased [Not Recovered/Not Resolved]
  - Pain [Recovered/Resolved]
  - Subcutaneous abscess [Recovered/Resolved]
  - Malaise [Recovered/Resolved]
  - Malaise [Unknown]

NARRATIVE: CASE EVENT DATE: 2013
